FAERS Safety Report 7946816-6 (Version None)
Quarter: 2011Q4

REPORT INFORMATION
  Report Type: 
  Country: None (occurrence: None)
  Receive Date: 20111129
  Receipt Date: 20111129
  Transmission Date: 20120403
  Serious: Yes (Hospitalization, Other)
  Sender: FDA-Public Use
  Company Number: US-ABBOTT-11P-163-0876105-00

PATIENT
  Sex: Female

DRUGS (11)
  1. METHOTREXATE [Concomitant]
     Indication: RHEUMATOID ARTHRITIS
     Dosage: ON FRIDAY
  2. PRAVASTATIN [Concomitant]
     Indication: BLOOD CHOLESTEROL INCREASED
  3. HUMIRA [Suspect]
     Indication: MENIERE'S DISEASE
     Dates: start: 20060101
  4. HUMIRA [Suspect]
     Indication: RHEUMATOID ARTHRITIS
  5. FOLIC ACID [Concomitant]
     Indication: RHEUMATOID ARTHRITIS
  6. HYDROCHLOROTHIAZIDE [Concomitant]
     Indication: MENIERE'S DISEASE
  7. ANTIBIOTICS [Concomitant]
     Indication: SUPERINFECTION VIRAL
     Route: 042
     Dates: start: 20080101, end: 20080101
  8. FISH OIL [Concomitant]
     Indication: SUPPLEMENTATION THERAPY
  9. ASCORBIC ACID [Concomitant]
     Indication: VITAMIN SUPPLEMENTATION
  10. VITAMIN D [Concomitant]
     Indication: VITAMIN SUPPLEMENTATION
  11. MULTI-VITAMINS [Concomitant]
     Indication: VITAMIN SUPPLEMENTATION

REACTIONS (11)
  - HYPOACUSIS [None]
  - CATARACT [None]
  - HEPATIC ENZYME INCREASED [None]
  - MENIERE'S DISEASE [None]
  - OFF LABEL USE [None]
  - ACTIVITIES OF DAILY LIVING IMPAIRED [None]
  - NERVOUS SYSTEM DISORDER [None]
  - FATIGUE [None]
  - COUGH [None]
  - SUPERINFECTION VIRAL [None]
  - PYREXIA [None]
